FAERS Safety Report 5133952-5 (Version None)
Quarter: 2006Q4

REPORT INFORMATION
  Report Type: 
  Country: None (occurrence: None)
  Receive Date: 20061023
  Receipt Date: 20061023
  Transmission Date: 20070319
  Serious: Yes (Disabling, Other)
  Sender: FDA-Public Use
  Company Number: None

PATIENT
  Age: 79 Year
  Sex: Female
  Weight: 64.6 kg

DRUGS (1)
  1. PRIMAXIN [Suspect]
     Indication: PNEUMONIA
     Dosage: 500 MG   Q8H    IV DRIP
     Route: 041
     Dates: start: 20061020, end: 20061020

REACTIONS (2)
  - DYSPNOEA [None]
  - INFUSION RELATED REACTION [None]
